FAERS Safety Report 21670647 (Version 2)
Quarter: 2023Q1

REPORT INFORMATION
  Report Type: Spontaneous
  Country: RE (occurrence: RE)
  Receive Date: 20221202
  Receipt Date: 20230328
  Transmission Date: 20230417
  Serious: Yes (Death, Other)
  Sender: FDA-Public Use
  Company Number: RE-BRISTOL-MYERS SQUIBB COMPANY-2022-146038

PATIENT

DRUGS (1)
  1. NULOJIX [Suspect]
     Active Substance: BELATACEPT
     Indication: Product used for unknown indication

REACTIONS (1)
  - Death [Fatal]
